FAERS Safety Report 25391697 (Version 1)
Quarter: 2025Q2

REPORT INFORMATION
  Report Type: Spontaneous
  Country: VN (occurrence: VN)
  Receive Date: 20250603
  Receipt Date: 20250603
  Transmission Date: 20250717
  Serious: Yes (Other)
  Sender: NOVARTIS
  Company Number: VN-002147023-NVSC2025VN087454

PATIENT
  Age: 37 Year
  Sex: Male

DRUGS (1)
  1. NILOTINIB [Suspect]
     Active Substance: NILOTINIB
     Indication: Philadelphia positive chronic myeloid leukaemia
     Dosage: 400 MG, QD
     Route: 065
     Dates: start: 202208

REACTIONS (7)
  - Hepatic cirrhosis [Unknown]
  - Portal vein dilatation [Unknown]
  - Blood bilirubin unconjugated increased [Unknown]
  - Hepatic enzyme increased [Recovered/Resolved]
  - Eye colour change [Unknown]
  - Hepatitis B core antibody positive [Unknown]
  - Yellow skin [Unknown]

NARRATIVE: CASE EVENT DATE: 20230601
